FAERS Safety Report 6726534-2 (Version None)
Quarter: 2010Q2

REPORT INFORMATION
  Report Type: 
  Country: None (occurrence: None)
  Receive Date: 20100514
  Receipt Date: 20100512
  Transmission Date: 20101027
  Serious: Yes (Other)
  Sender: FDA-Public Use
  Company Number: US-ROXANE LABORATORIES, INC.-2010-RO-00569RO

PATIENT
  Age: 13 Year
  Sex: Female

DRUGS (7)
  1. RISPERIDONE [Suspect]
     Indication: SCHIZOPHRENIFORM DISORDER
     Dosage: 2.5 MG
  2. RISPERIDONE [Suspect]
     Dosage: 3.5 RT
  3. RISPERIDONE [Suspect]
     Dosage: 1 MG
  4. BENZTROPINE MESYLATE [Suspect]
     Indication: SCHIZOPHRENIFORM DISORDER
     Dosage: 1 MG
  5. ARIPIPRAZOLE [Concomitant]
     Indication: PSYCHOTIC DISORDER
     Dosage: 2 MG
  6. ARIPIPRAZOLE [Concomitant]
     Dosage: 5 MG
  7. CABERGOLINE [Concomitant]
     Indication: HYPERPROLACTINAEMIA

REACTIONS (5)
  - BRADYPHRENIA [None]
  - HYPERPROLACTINAEMIA [None]
  - PARKINSONISM [None]
  - SEDATION [None]
  - WEIGHT INCREASED [None]
